FAERS Safety Report 9307741 (Version 1)
Quarter: 2013Q2

REPORT INFORMATION
  Report Type: Spontaneous
  Country: US (occurrence: US)
  Receive Date: 20130524
  Receipt Date: 20130524
  Transmission Date: 20140414
  Serious: Yes (Life-Threatening, Hospitalization)
  Sender: FDA-Public Use
  Company Number: US-BAYER-2013-063160

PATIENT
  Age: 40 Year
  Sex: Male

DRUGS (5)
  1. NIFEDIPINE [Suspect]
     Dosage: UNK UNK, ONCE
  2. VERAPAMIL [Suspect]
     Dosage: 3.6 G, ONCE
  3. CARBAMAZEPINE [Suspect]
     Dosage: 1800 MG, ONCE
  4. FLUOXETINE [Suspect]
     Dosage: UNKNOWN AMOUNT
  5. ETHANOL [Suspect]
     Dosage: UNKNOWN AMOUNT

REACTIONS (5)
  - Intentional overdose [Recovered/Resolved]
  - Hypotension [Recovered/Resolved]
  - Shock [Recovered/Resolved]
  - Atrioventricular block first degree [Recovered/Resolved]
  - Electrocardiogram QT prolonged [Recovered/Resolved]
